FAERS Safety Report 17453003 (Version 2)
Quarter: 2023Q1

REPORT INFORMATION
  Report Type: Spontaneous
  Country: DE (occurrence: DE)
  Receive Date: 20200224
  Receipt Date: 20230209
  Transmission Date: 20230417
  Serious: Yes (Life-Threatening, Hospitalization)
  Sender: FDA-Public Use
  Company Number: DE-NOVARTISPH-NVSC2020DE047103

PATIENT
  Age: 40 Year
  Sex: Female
  Weight: 55 kg

DRUGS (4)
  1. IBUPROFEN [Suspect]
     Active Substance: IBUPROFEN
     Indication: Product used for unknown indication
     Dosage: 600 MG, BID (BEDARFSMEDIKATION BEI INFEKT)
     Route: 048
  2. ACETAMINOPHEN\ASCORBIC ACID\GUAIFENESIN\PHENYLEPHRINE [Suspect]
     Active Substance: ACETAMINOPHEN\ASCORBIC ACID\GUAIFENESIN\PHENYLEPHRINE
     Indication: Product used for unknown indication
     Dosage: UNK, (NK NK, 2X/D, BEDARFSMEDIKATION BEI INFEKT, SAFT, ERKALTUNGS-GETRANK FUR DEN TAG)
     Route: 048
  3. ACETAMINOPHEN\DEXTROMETHORPHAN HYDROBROMIDE\DOXYLAMINE\EPHEDRINE SULFA [Suspect]
     Active Substance: ACETAMINOPHEN\DEXTROMETHORPHAN HYDROBROMIDE\DOXYLAMINE\EPHEDRINE SULFATE
     Indication: Product used for unknown indication
     Dosage: UNK, (NK NK, ZUR NACHT, BEDARFSMEDIKATION BEI INFEKT, SAFT, ERKALTUNGSSIRUP FUR DIE NACHT)
     Route: 048
  4. CODEINE [Concomitant]
     Active Substance: CODEINE
     Indication: Product used for unknown indication
     Dosage: 20 GGT, BEI BEDARF, TROPFEN
     Route: 048

REACTIONS (3)
  - Oedema peripheral [Unknown]
  - Jaundice [Unknown]
  - Product monitoring error [Unknown]
